FAERS Safety Report 6112277-5 (Version None)
Quarter: 2009Q1

REPORT INFORMATION
  Report Type: 
  Country: None (occurrence: None)
  Receive Date: 20090311
  Receipt Date: 20090311
  Transmission Date: 20090719
  Serious: Yes (Other)
  Sender: FDA-Public Use
  Company Number: None

PATIENT
  Age: 10 Year
  Sex: Male
  Weight: 94.8018 kg

DRUGS (1)
  1. BUSPIRONE HCL [Suspect]
     Indication: ANXIETY
     Dosage: 1/2 TAB AM ONCE TAB LUNCH
     Dates: start: 20040114, end: 20040128

REACTIONS (3)
  - IRRITABILITY [None]
  - POLLAKIURIA [None]
  - PRODUCT QUALITY ISSUE [None]
